FAERS Safety Report 16541192 (Version 1)
Quarter: 2019Q3

REPORT INFORMATION
  Report Type: Spontaneous
  Country: US (occurrence: US)
  Receive Date: 20190708
  Receipt Date: 20190708
  Transmission Date: 20191004
  Serious: No
  Sender: FDA-Public Use
  Company Number: US-TEVA-2019-US-1071991

PATIENT
  Sex: Female

DRUGS (2)
  1. CLONAZEPAM ACTIVIS PINK [Suspect]
     Active Substance: CLONAZEPAM
     Indication: ANXIETY
     Dates: start: 2009
  2. CLONAZEPAM ACTIVIS PINK [Suspect]
     Active Substance: CLONAZEPAM
     Indication: SLEEP DISORDER

REACTIONS (1)
  - Therapeutic product effect decreased [Unknown]
